FAERS Safety Report 9507638 (Version 2)
Quarter: 2016Q1

REPORT INFORMATION
  Report Type: Spontaneous
  Country: US (occurrence: US)
  Receive Date: 20130909
  Receipt Date: 20160201
  Transmission Date: 20160526
  Serious: Yes (Other)
  Sender: FDA-Public Use
  Company Number: US-009507513-1309USA002190

PATIENT
  Sex: Male

DRUGS (2)
  1. AVOBENZONE (+) HOMOSALATE (+) OCTISALATE (+) OCTOCRYLENE [Suspect]
     Active Substance: AVOBENZONE\HOMOSALATE\OCTISALATE\OCTOCRYLENE
     Indication: PRODUCT USED FOR UNKNOWN INDICATION
     Dosage: 1 DF, PRN
     Route: 061
     Dates: start: 2013, end: 2013
  2. AVOBENZONE (+) HOMOSALATE (+) OCTISALATE (+) OCTOCRYLENE [Suspect]
     Active Substance: AVOBENZONE\HOMOSALATE\OCTISALATE\OCTOCRYLENE
     Indication: PROPHYLAXIS
     Dosage: 1 DF, PRN
     Route: 061
     Dates: start: 2013

REACTIONS (4)
  - Circumstance or information capable of leading to medication error [Unknown]
  - Skin cancer [Unknown]
  - Rash erythematous [Recovered/Resolved]
  - Solar lentigo [Unknown]

NARRATIVE: CASE EVENT DATE: 2013
